FAERS Safety Report 17856270 (Version 1)
Quarter: 2020Q2

REPORT INFORMATION
  Report Type: Spontaneous
  Country: CN (occurrence: CN)
  Receive Date: 20200603
  Receipt Date: 20200603
  Transmission Date: 20200714
  Serious: Yes (Other)
  Sender: FDA-Public Use
  Company Number: CN-BAXTER-2020BAX011370

PATIENT
  Age: 49 Year
  Sex: Female
  Weight: 55 kg

DRUGS (8)
  1. PIRARUBICIN HYDROCHLORIDE [Suspect]
     Active Substance: PIRARUBICIN HYDROCHLORIDE
     Indication: BREAST CANCER
     Dosage: FIRST AND SECOND CYCLE OF PIRARUBICIN HYDROCHLORIDE + 5% GLUCOSE.
     Route: 041
  2. ENDOXAN [Suspect]
     Active Substance: CYCLOPHOSPHAMIDE
     Indication: BREAST CANCER
     Dosage: FIRST AND SECOND CYCLE OF CYCLOPHOSPHAMIDE + 0.9% SODIUM CHLORIDE.
     Route: 041
  3. 0.9% SODIUM CHLORIDE INJECTION [Suspect]
     Active Substance: SODIUM CHLORIDE
     Dosage: THIRD CYCLE OF CYCLOPHOSPHAMIDE + 0.9% SODIUM CHLORIDE.
     Route: 041
     Dates: start: 20200514, end: 20200514
  4. 5% GLUCOSE  INJECTION [Suspect]
     Active Substance: DEXTROSE
     Dosage: THIRD CYCLE OF PIRARUBICIN HYDROCHLORIDE + 0.5% GLUCOSE.
     Route: 041
     Dates: start: 20200514, end: 20200514
  5. PIRARUBICIN HYDROCHLORIDE [Suspect]
     Active Substance: PIRARUBICIN HYDROCHLORIDE
     Dosage: THIRD CYCLE OF PIRARUBICIN HYDROCHLORIDE + 5% GLUCOSE.
     Route: 041
     Dates: start: 20200514, end: 20200514
  6. 0.9% SODIUM CHLORIDE INJECTION [Suspect]
     Active Substance: SODIUM CHLORIDE
     Indication: MEDICATION DILUTION
     Dosage: FIRST AND SECOND CYCLE OF CYCLOPHOSPHAMIDE + 0.9% SODIUM CHLORIDE.
     Route: 041
  7. ENDOXAN [Suspect]
     Active Substance: CYCLOPHOSPHAMIDE
     Dosage: THIRD CYCLE OF CYCLOPHOSPHAMIDE + 0.9% SODIUM CHLORIDE.
     Route: 041
     Dates: start: 20200514, end: 20200514
  8. 5% GLUCOSE  INJECTION [Suspect]
     Active Substance: DEXTROSE
     Indication: MEDICATION DILUTION
     Dosage: FIRST AND SECOND CYCLE OF PIRARUBICIN HYDROCHLORIDE + 5% GLUCOSE.
     Route: 041

REACTIONS (2)
  - Nausea [Recovered/Resolved]
  - Discomfort [Unknown]

NARRATIVE: CASE EVENT DATE: 20200515
